FAERS Safety Report 7173764-4 (Version None)
Quarter: 2010Q4

REPORT INFORMATION
  Report Type: 
  Country: None (occurrence: None)
  Receive Date: 20101219
  Receipt Date: 20100309
  Transmission Date: 20110411
  Serious: No
  Sender: FDA-Public Use
  Company Number: US-AMGEN-KDL398628

PATIENT

DRUGS (2)
  1. ENBREL [Suspect]
     Indication: ANKYLOSING SPONDYLITIS
     Dosage: 25 MG, 2 TIMES/WK
     Route: 058
     Dates: start: 20040101
  2. SULFASALAZINE [Concomitant]
     Dosage: 500 MG, 2 TIMES/WK
     Dates: start: 20090224

REACTIONS (6)
  - ABDOMINAL PAIN UPPER [None]
  - ANKYLOSING SPONDYLITIS [None]
  - NAUSEA [None]
  - PAIN [None]
  - RASH [None]
  - RETCHING [None]
